FAERS Safety Report 6837314-1 (Version None)
Quarter: 2010Q3

REPORT INFORMATION
  Report Type: 
  Country: None (occurrence: None)
  Receive Date: 20100713
  Receipt Date: 20070731
  Transmission Date: 20110219
  Serious: No
  Sender: FDA-Public Use
  Company Number: US-PFIZER INC-2007038449

PATIENT
  Sex: Female
  Weight: 69.85 kg

DRUGS (7)
  1. CHANTIX [Suspect]
     Indication: SMOKING CESSATION THERAPY
     Route: 048
     Dates: start: 20070501
  2. MORPHINE SULFATE [Concomitant]
  3. PREDNISOLONE [Concomitant]
  4. HYDROCODONE BITARTRATE [Concomitant]
  5. DOCUSATE SODIUM [Concomitant]
  6. LEXAPRO [Concomitant]
  7. PREVACID [Concomitant]

REACTIONS (3)
  - NAUSEA [None]
  - TOBACCO ABUSE [None]
  - VOMITING [None]
